FAERS Safety Report 6974513-2 (Version None)
Quarter: 2010Q3

REPORT INFORMATION
  Report Type: 
  Country: None (occurrence: None)
  Receive Date: 20100909
  Receipt Date: 20100909
  Transmission Date: 20110219
  Serious: Yes (Hospitalization, Disabling, Other)
  Sender: FDA-Public Use
  Company Number: None

PATIENT
  Age: 60 Year
  Sex: Female
  Weight: 176.4492 kg

DRUGS (5)
  1. COMPLETE MULTI FORMULA BARIATRIC ADVANTAGE [Suspect]
     Indication: HYPOVITAMINOSIS
     Dosage: 1 QD PO (MONTH AND HALF)
     Route: 048
     Dates: start: 20100716, end: 20100831
  2. DRY VITAMIN D 5000IU BARIATRIC ADVANTAGE [Suspect]
     Indication: HYPOVITAMINOSIS
     Dosage: 1 QD PO (MONTH AND HALF)
     Route: 048
     Dates: start: 20100716, end: 20100831
  3. CALCIUM CITRATE CHEWY BITE LEMON FLAVORED WITH VIT D3 [Concomitant]
  4. CALCIUM CITRATE [Concomitant]
  5. B12 WITH FOLIC ACID [Concomitant]

REACTIONS (10)
  - ABASIA [None]
  - ASTHENIA [None]
  - BLOOD CREATINE INCREASED [None]
  - DIARRHOEA [None]
  - ELECTROLYTE IMBALANCE [None]
  - HYPOAESTHESIA [None]
  - INSOMNIA [None]
  - OEDEMA PERIPHERAL [None]
  - RENAL IMPAIRMENT [None]
  - UNEVALUABLE EVENT [None]
